FAERS Safety Report 12918829 (Version 1)
Quarter: 2016Q4

REPORT INFORMATION
  Report Type: Spontaneous
  Country: AT (occurrence: AT)
  Receive Date: 20161107
  Receipt Date: 20161107
  Transmission Date: 20170207
  Serious: Yes (Other)
  Sender: FDA-Public Use
  Company Number: AT-009507513-1511AUT002261

PATIENT
  Age: 62 Year
  Sex: Female

DRUGS (19)
  1. FLUOXETINE [Suspect]
     Active Substance: FLUOXETINE HYDROCHLORIDE
     Dosage: 40 MG, UNK
  2. DIPYRONE [Suspect]
     Active Substance: DIPYRONE
     Dosage: 4 G, UNK
  3. NITROGLYCERIN. [Suspect]
     Active Substance: NITROGLYCERIN
     Route: 062
  4. HYDROMORPHONE HYDROCHLORIDE. [Suspect]
     Active Substance: HYDROMORPHONE HYDROCHLORIDE
     Dosage: 5.20 MG, UNK
     Route: 048
  5. FENTANYL. [Suspect]
     Active Substance: FENTANYL
     Dosage: 150 UG IN 72 HOURS
     Route: 062
  6. GABAPENTIN. [Suspect]
     Active Substance: GABAPENTIN
     Dosage: OVER 3 DAYS UP TO 900 MG/DAY
  7. LEVOTHYROXINE SODIUM. [Suspect]
     Active Substance: LEVOTHYROXINE SODIUM
     Dosage: 150 ?G, UNK
  8. EXEMESTANE. [Concomitant]
     Active Substance: EXEMESTANE
  9. ALPRAZOLAM. [Suspect]
     Active Substance: ALPRAZOLAM
     Dosage: 0.5 MG, UNK
  10. POLYETHYLENE GLYCOL 3350. [Suspect]
     Active Substance: POLYETHYLENE GLYCOL 3350
  11. DIAZEPAM. [Suspect]
     Active Substance: DIAZEPAM
     Dosage: 2 X 5MG
  12. FENTANYL. [Suspect]
     Active Substance: FENTANYL
     Dosage: 75 UG IN 72 HOURS
     Route: 062
  13. ZOCORD [Suspect]
     Active Substance: SIMVASTATIN
     Dosage: 40 MG, UNK
  14. AMITRIPTYLINE HYDROCHLORIDE. [Suspect]
     Active Substance: AMITRIPTYLINE HYDROCHLORIDE
     Dosage: 100 MG/24HR, UNK
  15. FULVESTRANT [Concomitant]
     Active Substance: FULVESTRANT
  16. METOPROLOL TARTRATE. [Suspect]
     Active Substance: METOPROLOL TARTRATE
     Dosage: 47.5 MG, UNK
  17. ANASTROZOLE. [Suspect]
     Active Substance: ANASTROZOLE
     Dosage: UNK UNK, UNK
  18. ASPIRIN. [Suspect]
     Active Substance: ASPIRIN
     Dosage: 100 MG, UNK
  19. DOXORUBICIN HYDROCHLORIDE. [Concomitant]
     Active Substance: DOXORUBICIN HYDROCHLORIDE

REACTIONS (2)
  - Sepsis [Unknown]
  - Delirium [Unknown]
